FAERS Safety Report 9692550 (Version 2)
Quarter: 2013Q4

REPORT INFORMATION
  Report Type: Spontaneous
  Country: JP (occurrence: JP)
  Receive Date: 20131118
  Receipt Date: 20131118
  Transmission Date: 20140711
  Serious: Yes (Death, Hospitalization)
  Sender: FDA-Public Use
  Company Number: JP-BAYER-2013-115321

PATIENT
  Age: 33 Year
  Sex: Male
  Weight: 54 kg

DRUGS (7)
  1. STIVARGA [Suspect]
     Indication: COLORECTAL CANCER
     Dosage: 160 MG, QD (3 WEEKS AND OFF FOR 1 WEEK)
     Route: 048
     Dates: start: 20130910, end: 20130916
  2. LOXOPROFEN [Suspect]
     Dosage: DAILY DOSE 240 MG
     Route: 048
     Dates: start: 20130412, end: 20130925
  3. ROCEPHIN [Suspect]
     Dosage: DAILY DOSE 2 MG
     Dates: start: 20130904, end: 20130917
  4. NEXIUM [Concomitant]
     Dosage: DAILY DOSE 20 MG
     Route: 048
     Dates: start: 20130412, end: 20130925
  5. MAGMITT [Concomitant]
     Dosage: DAILY DOSE 1980 MG
     Route: 048
     Dates: start: 20130703, end: 20130925
  6. SENNOSIDE [Concomitant]
     Dosage: DAILY DOSE 24 MG
     Route: 048
     Dates: start: 20130831, end: 20130925
  7. MORPHINE HYDROCHLORIDE [Concomitant]
     Dosage: DAILY DOSE 96 MG
     Route: 058
     Dates: start: 20130830, end: 20130930

REACTIONS (6)
  - Aspartate aminotransferase increased [Recovering/Resolving]
  - Alanine aminotransferase increased [Recovering/Resolving]
  - Blood bilirubin increased [Recovering/Resolving]
  - Blood creatinine increased [Not Recovered/Not Resolved]
  - Blood potassium increased [Not Recovered/Not Resolved]
  - Colon cancer [Fatal]
